FAERS Safety Report 5606311-6 (Version None)
Quarter: 2008Q1

REPORT INFORMATION
  Report Type: 
  Country: None (occurrence: None)
  Receive Date: 20080129
  Receipt Date: 20070524
  Transmission Date: 20080703
  Serious: No
  Sender: FDA-Public Use
  Company Number: A0652991A

PATIENT
  Sex: Female

DRUGS (4)
  1. BUPROPION HYDROCHLORIDE [Suspect]
     Indication: DRUG USE FOR UNKNOWN INDICATION
     Route: 048
  2. WELLBUTRIN SR [Concomitant]
     Indication: DRUG USE FOR UNKNOWN INDICATION
     Dosage: 200MG UNKNOWN
     Route: 048
  3. IMITREX [Concomitant]
  4. UNSPECIFIED MEDICATIONS [Concomitant]

REACTIONS (1)
  - CONDITION AGGRAVATED [None]
